FAERS Safety Report 17392017 (Version 1)
Quarter: 2020Q1

REPORT INFORMATION
  Report Type: Spontaneous
  Country: ES (occurrence: ES)
  Receive Date: 20200207
  Receipt Date: 20200207
  Transmission Date: 20200409
  Serious: Yes (Other)
  Sender: FDA-Public Use
  Company Number: ES-BAUSCH-BL-2020-004170

PATIENT
  Age: 46 Year
  Sex: Female

DRUGS (6)
  1. ERYTHROMYCIN. [Concomitant]
     Active Substance: ERYTHROMYCIN
     Indication: CORNEAL ABSCESS
     Route: 065
  2. MOXIFLOXACIN. [Concomitant]
     Active Substance: MOXIFLOXACIN
     Indication: CORNEAL ABSCESS
     Route: 048
  3. ATROPINE. [Concomitant]
     Active Substance: ATROPINE
     Indication: CORNEAL ABSCESS
     Route: 065
  4. CEFTAZIDIME. [Concomitant]
     Active Substance: CEFTAZIDIME
     Indication: CORNEAL ABSCESS
     Route: 065
  5. DEXAMETHASONE. [Suspect]
     Active Substance: DEXAMETHASONE
     Indication: CORNEAL ABSCESS
     Route: 061
  6. VANCOMYCIN [Concomitant]
     Active Substance: VANCOMYCIN
     Indication: CORNEAL ABSCESS
     Dosage: DROPS, FORTIFIED
     Route: 065

REACTIONS (1)
  - Infectious crystalline keratopathy [Unknown]
